FAERS Safety Report 4844859-2 (Version None)
Quarter: 2005Q4

REPORT INFORMATION
  Report Type: 
  Country: None (occurrence: None)
  Receive Date: 20051205
  Receipt Date: 20051129
  Transmission Date: 20060501
  Serious: Yes (Hospitalization)
  Sender: FDA-Public Use
  Company Number: FR-JNJFOC-20051101051

PATIENT
  Sex: Male
  Weight: 59 kg

DRUGS (4)
  1. RISPERDAL [Suspect]
     Indication: DRUG USE FOR UNKNOWN INDICATION
     Route: 048
  2. DIAMICRON [Concomitant]
     Dosage: DOSE = TABLET
  3. GLUCOPHAGE [Concomitant]
     Dosage: DOSE = TABLET
  4. EXELON [Concomitant]

REACTIONS (14)
  - ANGIONEUROTIC OEDEMA [None]
  - BALANCE DISORDER [None]
  - EYE ROLLING [None]
  - FAECAL INCONTINENCE [None]
  - FALL [None]
  - FATIGUE [None]
  - GAIT DISTURBANCE [None]
  - HYPERGLYCAEMIA [None]
  - HYPERTENSION [None]
  - ILL-DEFINED DISORDER [None]
  - MUSCULOSKELETAL STIFFNESS [None]
  - MYOCARDIAL INFARCTION [None]
  - SWELLING FACE [None]
  - URINARY INCONTINENCE [None]
